FAERS Safety Report 6073543-5 (Version None)
Quarter: 2009Q1

REPORT INFORMATION
  Report Type: 
  Country: None (occurrence: None)
  Receive Date: 20090211
  Receipt Date: 20090203
  Transmission Date: 20090719
  Serious: Yes (Other)
  Sender: FDA-Public Use
  Company Number: FR-ASTRAZENECA-2008CG01861

PATIENT
  Age: 25373 Day
  Sex: Female
  Weight: 52 kg

DRUGS (2)
  1. ARIMIDEX [Suspect]
     Indication: BREAST CANCER FEMALE
     Route: 048
     Dates: start: 20081101, end: 20081115
  2. DETENSIEL [Concomitant]
     Indication: HYPERTENSION
     Dates: start: 19980101

REACTIONS (1)
  - TOXIC SKIN ERUPTION [None]
